FAERS Safety Report 5465852-5 (Version None)
Quarter: 2007Q3

REPORT INFORMATION
  Report Type: 
  Country: None (occurrence: None)
  Receive Date: 20070924
  Receipt Date: 20070913
  Transmission Date: 20080115
  Serious: Yes (Hospitalization)
  Sender: FDA-Public Use
  Company Number: PHEH2007US12318

PATIENT
  Sex: Female

DRUGS (1)
  1. FEMARA [Suspect]
     Indication: BREAST CANCER
     Dosage: 2.5 MG, QD
     Route: 048
     Dates: start: 20070813, end: 20070904

REACTIONS (4)
  - ERYTHEMA [None]
  - PARANEOPLASTIC SYNDROME [None]
  - POLYARTHRITIS [None]
  - SWELLING [None]
